FAERS Safety Report 7864159-6 (Version None)
Quarter: 2011Q4

REPORT INFORMATION
  Report Type: 
  Country: None (occurrence: None)
  Receive Date: 20111028
  Receipt Date: 20111024
  Transmission Date: 20120403
  Serious: Yes (Other)
  Sender: FDA-Public Use
  Company Number: IE-PFIZER INC-2011258663

PATIENT
  Sex: Male

DRUGS (1)
  1. SUTENT [Suspect]
     Dosage: 50 MG, CYCLIC 4/2 SCHEDULE

REACTIONS (2)
  - ORAL CANDIDIASIS [None]
  - OESOPHAGEAL CANDIDIASIS [None]
